FAERS Safety Report 8963187 (Version 1)
Quarter: 2012Q4

REPORT INFORMATION
  Report Type: 
  Country: IT (occurrence: IT)
  Receive Date: 20121213
  Receipt Date: 20121213
  Transmission Date: 20130627
  Serious: Yes (Other)
  Sender: FDA-Public Use
  Company Number: IT-PFIZER INC-2012313320

PATIENT

DRUGS (1)
  1. IBUPROFEN [Suspect]
     Route: 048

REACTIONS (1)
  - Pancytopenia [Unknown]
